FAERS Safety Report 16864839 (Version 2)
Quarter: 2019Q4

REPORT INFORMATION
  Report Type: Spontaneous
  Country: HR (occurrence: HR)
  Receive Date: 20190929
  Receipt Date: 20191018
  Transmission Date: 20200122
  Serious: Yes (Other)
  Sender: FDA-Public Use
  Company Number: PHHY2019HR225467

PATIENT
  Sex: Female

DRUGS (3)
  1. RANITAL 300 MG TABLETE [Suspect]
     Active Substance: RANITIDINE
     Indication: GASTRITIS
     Dosage: 1 DF, QD(IN THE EVENING)
     Route: 065
     Dates: start: 2017, end: 20190925
  2. COLOSPA [Concomitant]
     Indication: GASTRITIS
     Dosage: UNK(POST PRANDIAL)
     Route: 065
  3. CONTROLOC [Concomitant]
     Active Substance: PANTOPRAZOLE SODIUM
     Indication: GASTRITIS
     Dosage: UNK(FASTING)
     Route: 065

REACTIONS (1)
  - Blood prolactin increased [Recovered/Resolved]
